FAERS Safety Report 7657054-9 (Version None)
Quarter: 2011Q3

REPORT INFORMATION
  Report Type: 
  Country: None (occurrence: None)
  Receive Date: 20110804
  Receipt Date: 20110721
  Transmission Date: 20111222
  Serious: Yes (Death, Life-Threatening, Other)
  Sender: FDA-Public Use
  Company Number: JP-BAYER-2011-008943

PATIENT
  Age: 61 Year
  Sex: Male
  Weight: 56 kg

DRUGS (10)
  1. LASIX [Suspect]
     Dosage: DAILY DOSE 80 MG
     Route: 048
     Dates: start: 20101101, end: 20110101
  2. RABEPRAZOLE SODIUM [Concomitant]
     Dosage: DAILY DOSE 10 MG
     Route: 048
     Dates: start: 20101101, end: 20110124
  3. LIVACT [Concomitant]
     Dosage: DAILY DOSE 12.45 G
     Route: 048
     Dates: start: 20101101, end: 20110124
  4. FLUID REPLACEMENT [Concomitant]
  5. ALDACTONE [Suspect]
     Dosage: DAILY DOSE 200 MG
     Route: 048
     Dates: start: 20101101
  6. ALDACTONE [Suspect]
     Dosage: UNK
     Route: 048
     Dates: start: 20110120, end: 20110122
  7. DIURETICS [Concomitant]
     Route: 065
  8. NEXAVAR [Suspect]
     Indication: HEPATITIS C
  9. LASIX [Suspect]
     Dosage: DAILY DOSE 40 MG
     Route: 048
     Dates: start: 20110120, end: 20110122
  10. NEXAVAR [Suspect]
     Indication: HEPATIC NEOPLASM MALIGNANT
     Dosage: 400 MG, QD
     Route: 048
     Dates: start: 20110117, end: 20110121

REACTIONS (10)
  - BLOOD BILIRUBIN INCREASED [None]
  - MULTI-ORGAN FAILURE [None]
  - VOMITING [None]
  - HEPATIC FUNCTION ABNORMAL [None]
  - TUMOUR LYSIS SYNDROME [None]
  - DECREASED APPETITE [None]
  - HEPATIC ENCEPHALOPATHY [None]
  - HYPERURICAEMIA [None]
  - RENAL FAILURE ACUTE [None]
  - HYPERKALAEMIA [None]
